FAERS Safety Report 25524560 (Version 2)
Quarter: 2025Q3

REPORT INFORMATION
  Report Type: Spontaneous
  Country: CN (occurrence: CN)
  Receive Date: 20250707
  Receipt Date: 20250724
  Transmission Date: 20251020
  Serious: Yes (Other)
  Sender: ELI LILLY AND COMPANY
  Company Number: CN-ELI_LILLY_AND_COMPANY-CN202506027024

PATIENT
  Age: 76 Year
  Sex: Female

DRUGS (3)
  1. DONANEMAB [Suspect]
     Active Substance: DONANEMAB
     Indication: Dementia Alzheimer^s type
     Dosage: 350 MG, MONTHLY (1/M) (1ST INFUSION)
     Route: 042
     Dates: start: 20250430
  2. DONANEMAB [Suspect]
     Active Substance: DONANEMAB
     Indication: Dementia
     Dosage: 700 MG, MONTHLY (1/M) (2ND INFUSION)
     Route: 042
  3. DONANEMAB [Suspect]
     Active Substance: DONANEMAB
     Indication: Cognitive disorder
     Dosage: 1050 MG, MONTHLY (1/M) (3RD INFUSION)
     Route: 042
     Dates: start: 20250626, end: 20250626

REACTIONS (5)
  - Infusion related hypersensitivity reaction [Recovering/Resolving]
  - Palpitations [Recovering/Resolving]
  - Body temperature increased [Recovering/Resolving]
  - Feeling cold [Recovering/Resolving]
  - Off label use [Unknown]

NARRATIVE: CASE EVENT DATE: 20250626
